FAERS Safety Report 10590068 (Version 1)
Quarter: 2014Q4

REPORT INFORMATION
  Report Type: Spontaneous
  Country: US (occurrence: None)
  Receive Date: 20141117
  Receipt Date: 20141117
  Transmission Date: 20150529
  Serious: No
  Sender: FDA-Public Use
  Company Number: None

PATIENT
  Age: 65 Year
  Sex: Male
  Weight: 151.96 kg

DRUGS (10)
  1. ENALAPRIL [Concomitant]
     Active Substance: ENALAPRIL
  2. HYDROCODONE10/325 10/325 MALLINCKRODT [Suspect]
     Active Substance: ACETAMINOPHEN\HYDROCODONE
     Indication: ARTHRALGIA
     Dosage: EVERY 4-6HOURS, ORAL
     Route: 048
     Dates: start: 20141013, end: 20141020
  3. TESTOSTERONE CYMPONIATE [Concomitant]
     Active Substance: TESTOSTERONE CYPIONATE
  4. CHOLECALCIFEROL [Concomitant]
     Active Substance: CHOLECALCIFEROL
  5. B VITAMINS [Concomitant]
     Active Substance: CYANOCOBALAMIN\DEXPANTHENOL\NIACINAMIDE\PYRIDOXINE HYDROCHLORIDE\RIBOFLAVIN 5^-PHOSPHATE SODIUM\THIAMINE HYDROCHLORIDE\VITAMIN B COMPLEX
  6. FISH OIL [Concomitant]
     Active Substance: FISH OIL
  7. HYDROCODONE10/325 10/325 MALLINCKRODT [Suspect]
     Active Substance: ACETAMINOPHEN\HYDROCODONE
     Indication: PAIN
     Dosage: EVERY 4-6HOURS, ORAL
     Route: 048
     Dates: start: 20141013, end: 20141020
  8. PREGABALIN. [Concomitant]
     Active Substance: PREGABALIN
  9. OMEPRAZOLE. [Concomitant]
     Active Substance: OMEPRAZOLE
  10. ALPRAZOLAM. [Concomitant]
     Active Substance: ALPRAZOLAM

REACTIONS (1)
  - Nausea [None]

NARRATIVE: CASE EVENT DATE: 20141114
